FAERS Safety Report 8139436-4 (Version None)
Quarter: 2012Q1

REPORT INFORMATION
  Report Type: 
  Country: None (occurrence: None)
  Receive Date: 20120215
  Receipt Date: 20120202
  Transmission Date: 20120608
  Serious: Yes (Hospitalization)
  Sender: FDA-Public Use
  Company Number: FR-ROCHE-1029215

PATIENT
  Sex: Female
  Weight: 79 kg

DRUGS (7)
  1. PREDNISONE TAB [Concomitant]
     Route: 048
  2. ACETAMINOPHEN AND TRAMADOL HCL [Concomitant]
     Dosage: DOSE: 1800
     Route: 048
  3. ACTEMRA [Suspect]
     Indication: RHEUMATOID ARTHRITIS
     Dosage: 4 MOST RECENT INFUSION PRIOR TO SAE ON 23/DEC/2011
     Route: 042
     Dates: start: 20111124
  4. SECTRAL [Concomitant]
     Dosage: DOSE 20
  5. SIMVASTATIN [Concomitant]
     Route: 048
  6. NEXIUM [Concomitant]
  7. RAMIPRIL [Concomitant]

REACTIONS (4)
  - NAUSEA [None]
  - ALANINE AMINOTRANSFERASE INCREASED [None]
  - ABDOMINAL PAIN [None]
  - VOMITING [None]
